FAERS Safety Report 14249082 (Version 20)
Quarter: 2018Q2

REPORT INFORMATION
  Report Type: Spontaneous
  Country: DE (occurrence: DE)
  Receive Date: 20171204
  Receipt Date: 20180628
  Transmission Date: 20180711
  Serious: Yes (Death, Other)
  Sender: FDA-Public Use
  Company Number: DE-B.I. PHARMACEUTICALS,INC./RIDGEFIELD-2017-BI-064635

PATIENT
  Age: 78 Year
  Sex: Male

DRUGS (37)
  1. QUETIAPINE FUMARATE. [Suspect]
     Active Substance: QUETIAPINE FUMARATE
     Indication: AGITATION
     Dosage: 100 MG,QD
     Route: 048
     Dates: start: 20170101
  2. PAROXETINE HYDROCHLORIDE. [Suspect]
     Active Substance: PAROXETINE HYDROCHLORIDE
     Indication: AGITATION
     Dosage: 10 MG,QD
     Route: 065
     Dates: start: 20170101
  3. FLUPENTIXOL [Suspect]
     Active Substance: FLUPENTIXOL
     Indication: PARANOIA
     Dosage: 20 MG,QD
     Route: 048
  4. FLUPENTIXOL [Suspect]
     Active Substance: FLUPENTIXOL
     Indication: DELIRIUM
     Dosage: UNK UNK,UNK
     Route: 048
  5. FLUPENTIXOL [Suspect]
     Active Substance: FLUPENTIXOL
     Indication: DEMENTIA WITH LEWY BODIES
  6. LORAZEPAM. [Suspect]
     Active Substance: LORAZEPAM
     Indication: DEMENTIA WITH LEWY BODIES
     Route: 065
  7. RIVASTIGMINE. [Concomitant]
     Active Substance: RIVASTIGMINE
     Indication: DELIRIUM
  8. PAROXETINE HYDROCHLORIDE. [Suspect]
     Active Substance: PAROXETINE HYDROCHLORIDE
     Indication: DELIRIUM
  9. DEXTROMETHORPHAN HYDROBROMIDE. [Suspect]
     Active Substance: DEXTROMETHORPHAN HYDROBROMIDE
     Indication: AGITATION
     Dosage: 40 MG, DIVIDED INTO 2 DOSAGES
     Route: 065
     Dates: start: 2017
  10. DEXTROMETHORPHAN HYDROBROMIDE. [Suspect]
     Active Substance: DEXTROMETHORPHAN HYDROBROMIDE
     Indication: AGGRESSION
     Dosage: 24 MG,QD
     Route: 065
     Dates: start: 20170101
  11. CARBAMAZEPINE. [Concomitant]
     Active Substance: CARBAMAZEPINE
     Indication: DEMENTIA WITH LEWY BODIES
     Dosage: UNK UNK,UNK
     Route: 065
  12. DRONABINOL. [Suspect]
     Active Substance: DRONABINOL
     Dosage: 15 MG,QD
     Route: 065
     Dates: start: 20160101
  13. RIVASTIGMINE. [Concomitant]
     Active Substance: RIVASTIGMINE
     Indication: DEMENTIA WITH LEWY BODIES
  14. QUETIAPINE FUMARATE. [Suspect]
     Active Substance: QUETIAPINE FUMARATE
     Indication: AGGRESSION
     Dosage: UNK UNK,QD
     Route: 048
     Dates: start: 20160101
  15. DRONABINOL. [Suspect]
     Active Substance: DRONABINOL
     Indication: AGGRESSION
     Dosage: UNK UNK,UNK
     Route: 065
     Dates: start: 20160101
  16. DEXTROMETHORPHAN HYDROBROMIDE. [Suspect]
     Active Substance: DEXTROMETHORPHAN HYDROBROMIDE
     Indication: DELIRIUM
     Dosage: DOSE INCREASED, TWO DIVIDED DOSES;
     Route: 065
     Dates: start: 2017
  17. CARBAMAZEPINE. [Concomitant]
     Active Substance: CARBAMAZEPINE
     Indication: AGGRESSION
  18. DONEPEZIL. [Concomitant]
     Active Substance: DONEPEZIL
     Indication: DELIRIUM
  19. RIVASTIGMINE. [Concomitant]
     Active Substance: RIVASTIGMINE
     Indication: AGGRESSION
  20. PAROXETINE HYDROCHLORIDE. [Suspect]
     Active Substance: PAROXETINE HYDROCHLORIDE
     Indication: AGGRESSION
  21. DRONABINOL. [Suspect]
     Active Substance: DRONABINOL
     Indication: DELIRIUM
     Dosage: 2.5 MG,QD
     Route: 065
     Dates: start: 20160101
  22. AMPICILLIN/SULBACTAM [Suspect]
     Active Substance: AMPICILLIN SODIUM\SULBACTAM SODIUM
     Indication: PNEUMONIA
     Dosage: UNK UNK,UNK
     Route: 065
     Dates: start: 20160101
  23. FORMOTEROL FUMARATE [Suspect]
     Active Substance: FORMOTEROL FUMARATE
     Indication: PNEUMONIA
     Dosage: 20 MG,QD
     Route: 065
     Dates: start: 20160101
  24. DONEPEZIL. [Concomitant]
     Active Substance: DONEPEZIL
     Indication: AGGRESSION
     Dosage: UNK UNK,UNK
     Route: 065
  25. QUETIAPINE FUMARATE. [Suspect]
     Active Substance: QUETIAPINE FUMARATE
     Indication: DELIRIUM
     Dosage: 150 MG,QD
     Route: 048
     Dates: start: 20160101
  26. QUETIAPINE FUMARATE. [Suspect]
     Active Substance: QUETIAPINE FUMARATE
     Indication: DEMENTIA WITH LEWY BODIES
     Dosage: UNK UNK,QD
     Route: 048
     Dates: start: 20160101
  27. FLUPENTIXOL [Suspect]
     Active Substance: FLUPENTIXOL
     Indication: HANGOVER
  28. FLUPENTIXOL [Suspect]
     Active Substance: FLUPENTIXOL
     Indication: PNEUMONIA
  29. FLUPENTIXOL [Suspect]
     Active Substance: FLUPENTIXOL
     Indication: AGGRESSION
  30. LORAZEPAM. [Suspect]
     Active Substance: LORAZEPAM
     Indication: DELIRIUM
  31. SPIRIVA [Suspect]
     Active Substance: TIOTROPIUM BROMIDE MONOHYDRATE
     Indication: PNEUMONIA
     Dosage: UNK UNK,UNK
     Route: 048
     Dates: start: 20160101
  32. FLUPENTIXOL [Suspect]
     Active Substance: FLUPENTIXOL
     Indication: POOR QUALITY SLEEP
  33. FLUPENTIXOL [Suspect]
     Active Substance: FLUPENTIXOL
     Indication: AGITATION
  34. LORAZEPAM. [Suspect]
     Active Substance: LORAZEPAM
     Indication: AGGRESSION
     Dosage: UNK UNK,QD
     Route: 065
     Dates: start: 20160101
  35. LORAZEPAM. [Suspect]
     Active Substance: LORAZEPAM
     Indication: AGITATION
  36. DONEPEZIL. [Concomitant]
     Active Substance: DONEPEZIL
     Indication: DEMENTIA WITH LEWY BODIES
  37. RIVASTIGMINE. [Concomitant]
     Active Substance: RIVASTIGMINE
     Indication: AGITATION
     Dosage: UNK UNK,QD
     Route: 065

REACTIONS (13)
  - Paranoia [Fatal]
  - Condition aggravated [Fatal]
  - Paradoxical drug reaction [Fatal]
  - Aggression [Fatal]
  - Agitation [Fatal]
  - Delirium [Fatal]
  - Fatigue [Fatal]
  - Hangover [Fatal]
  - Completed suicide [Fatal]
  - Off label use [Fatal]
  - Rebound effect [Fatal]
  - Sleep disorder [Fatal]
  - Withdrawal syndrome [Fatal]

NARRATIVE: CASE EVENT DATE: 201601
